FAERS Safety Report 25121513 (Version 1)
Quarter: 2025Q1

REPORT INFORMATION
  Report Type: Spontaneous
  Country: US (occurrence: US)
  Receive Date: 20250326
  Receipt Date: 20250326
  Transmission Date: 20250409
  Serious: Yes (Other)
  Sender: STRIDES
  Company Number: US-STRIDES ARCOLAB LIMITED-2023SP012749

PATIENT
  Age: 57 Year
  Sex: Male

DRUGS (3)
  1. DEXAMETHASONE [Suspect]
     Active Substance: DEXAMETHASONE
     Indication: COVID-19
     Route: 065
  2. HEPARIN [Concomitant]
     Active Substance: HEPARIN SODIUM
     Indication: Cardiac ventricular thrombosis
     Route: 041
  3. HEPARIN [Concomitant]
     Active Substance: HEPARIN SODIUM
     Route: 041

REACTIONS (2)
  - Herpes simplex oesophagitis [Unknown]
  - Off label use [Unknown]
